FAERS Safety Report 6135388-7 (Version None)
Quarter: 2009Q1

REPORT INFORMATION
  Report Type: 
  Country: None (occurrence: None)
  Receive Date: 20090327
  Receipt Date: 20090313
  Transmission Date: 20090719
  Serious: Yes (Hospitalization, Other)
  Sender: FDA-Public Use
  Company Number: US-JNJCH-2009007395

PATIENT
  Age: 25 Year
  Sex: Male
  Weight: 72.6 kg

DRUGS (2)
  1. SUDAFED 12 HOUR [Suspect]
     Indication: NASOPHARYNGITIS
     Dosage: TEXT:2 TABLETS TWICE DAILY
     Route: 048
     Dates: start: 20090224, end: 20090227
  2. ALLEGRA [Concomitant]
     Indication: HYPERSENSITIVITY
     Dosage: TEXT:180 MG, UNSPECIFIED
     Route: 065

REACTIONS (2)
  - CONVULSION [None]
  - OVERDOSE [None]
